FAERS Safety Report 9135165 (Version 2)
Quarter: 2013Q2

REPORT INFORMATION
  Report Type: Spontaneous
  Country: DE (occurrence: DE)
  Receive Date: 20130304
  Receipt Date: 20130418
  Transmission Date: 20140414
  Serious: Yes (Life-Threatening, Hospitalization)
  Sender: FDA-Public Use
  Company Number: DE-PFIZER INC-2013071701

PATIENT
  Age: 52 Year
  Sex: Female
  Weight: 78 kg

DRUGS (2)
  1. TAVOR [Suspect]
     Indication: PERSONALITY DISORDER
     Dosage: 40 MG, SINGLE
     Dates: start: 20130222
  2. IBUPROFEN [Suspect]
     Dosage: 12 G, SINGLE

REACTIONS (2)
  - Intentional self-injury [Recovered/Resolved]
  - Somnolence [Recovered/Resolved]
